FAERS Safety Report 8003355-4 (Version None)
Quarter: 2011Q4

REPORT INFORMATION
  Report Type: 
  Country: None (occurrence: None)
  Receive Date: 20111222
  Receipt Date: 20111216
  Transmission Date: 20120403
  Serious: No
  Sender: FDA-Public Use
  Company Number: US-B.I. PHARMACEUTICALS,INC./RIDGEFIELD-2011-BP-28303BP

PATIENT
  Sex: Female

DRUGS (5)
  1. NASAL SPRAY [Concomitant]
     Indication: MIGRAINE
     Route: 048
  2. PRADAXA [Suspect]
     Indication: PULMONARY EMBOLISM
     Dosage: 300 MG
     Route: 048
     Dates: start: 20110601
  3. PAIN MEDICATION [Concomitant]
     Indication: PAIN
     Route: 048
  4. STATIN [Concomitant]
     Indication: BLOOD CHOLESTEROL INCREASED
     Route: 048
  5. NEXIUM [Concomitant]
     Indication: GASTROOESOPHAGEAL REFLUX DISEASE
     Route: 048

REACTIONS (2)
  - DYSPNOEA [None]
  - CHEST DISCOMFORT [None]
